FAERS Safety Report 13402482 (Version 1)
Quarter: 2017Q2

REPORT INFORMATION
  Report Type: Report from Study
  Country: US (occurrence: US)
  Receive Date: 20170404
  Receipt Date: 20170404
  Transmission Date: 20170830
  Serious: Yes (Other)
  Sender: FDA-Public Use
  Company Number: US-009507513-1703USA012530

PATIENT
  Age: 19 Year
  Sex: Female

DRUGS (2)
  1. NEXPLANON [Suspect]
     Active Substance: ETONOGESTREL
     Indication: CONTRACEPTION
     Route: 059
  2. NEXPLANON [Suspect]
     Active Substance: ETONOGESTREL
     Dosage: UNK
     Route: 059

REACTIONS (11)
  - Mood swings [Unknown]
  - Hormone level abnormal [Unknown]
  - Affect lability [Recovered/Resolved]
  - Depressed mood [Unknown]
  - Anxiety [Unknown]
  - Mood altered [Recovered/Resolved]
  - Nerve compression [Unknown]
  - Perinatal depression [Unknown]
  - Weight increased [Recovered/Resolved]
  - Confusional state [Unknown]
  - Feeling abnormal [Recovered/Resolved]
